FAERS Safety Report 4274344-0 (Version None)
Quarter: 2004Q1

REPORT INFORMATION
  Report Type: 
  Country: None (occurrence: None)
  Receive Date: 20040115
  Receipt Date: 20040105
  Transmission Date: 20041129
  Serious: Yes (Hospitalization)
  Sender: FDA-Public Use
  Company Number: 03P-062-0222859-00

PATIENT
  Age: 44 Year
  Sex: Male

DRUGS (4)
  1. BIAXIN [Suspect]
     Indication: TONSILLITIS
     Dosage: 250 MG, 2 IN 1 D , PER ORAL : 500 MG , 2 IN 1 D, PER ORAL
     Route: 048
     Dates: start: 20030512, end: 20030512
  2. BIAXIN [Suspect]
     Indication: TONSILLITIS
     Dosage: 250 MG, 2 IN 1 D , PER ORAL : 500 MG , 2 IN 1 D, PER ORAL
     Route: 048
     Dates: start: 20030513, end: 20030513
  3. ACETYLCYSTEINE [Concomitant]
  4. ACETAMINOPHEN [Concomitant]

REACTIONS (3)
  - HEPATITIS [None]
  - HYPERBILIRUBINAEMIA [None]
  - THROMBOCYTOPENIA [None]
